FAERS Safety Report 16599218 (Version 2)
Quarter: 2019Q3

REPORT INFORMATION
  Report Type: Spontaneous
  Country: CZ (occurrence: CZ)
  Receive Date: 20190719
  Receipt Date: 20190731
  Transmission Date: 20191004
  Serious: Yes (Life-Threatening, Hospitalization, Other)
  Sender: FDA-Public Use
  Company Number: CZ-SA-2019SA189271

PATIENT
  Age: 52 Year
  Sex: Female

DRUGS (8)
  1. OXALIPLATIN. [Suspect]
     Active Substance: OXALIPLATIN
     Indication: RECTAL ADENOCARCINOMA
     Dosage: UNK
     Dates: start: 201211, end: 201504
  2. CAPECITABINE. [Concomitant]
     Active Substance: CAPECITABINE
  3. PANITUMUMAB [Concomitant]
     Active Substance: PANITUMUMAB
     Indication: METASTASES TO LIVER
     Dosage: UNK
     Dates: start: 201211, end: 201504
  4. DE GRAMONT [Concomitant]
     Indication: METASTASES TO LIVER
  5. IRINOTECAN [Concomitant]
     Active Substance: IRINOTECAN
  6. PANITUMUMAB [Concomitant]
     Active Substance: PANITUMUMAB
     Indication: RECTAL ADENOCARCINOMA
  7. OXALIPLATIN. [Suspect]
     Active Substance: OXALIPLATIN
     Indication: METASTASES TO LIVER
  8. DE GRAMONT [Concomitant]
     Indication: RECTAL ADENOCARCINOMA
     Dosage: UNK
     Dates: start: 201211, end: 201504

REACTIONS (18)
  - Creatinine renal clearance decreased [Unknown]
  - Evans syndrome [Recovered/Resolved]
  - Acute kidney injury [Recovered/Resolved]
  - Coombs test positive [Unknown]
  - Thrombocytopenia [Unknown]
  - Hepatic enzyme increased [Unknown]
  - Therapy partial responder [Unknown]
  - Haematuria [Unknown]
  - Disease progression [Unknown]
  - Flushing [Unknown]
  - Haemolytic anaemia [Unknown]
  - Haemolysis [Unknown]
  - Haemoglobinuria [Unknown]
  - Platelet count decreased [Unknown]
  - Urine output decreased [Unknown]
  - Neurotoxicity [Unknown]
  - Pruritus [Unknown]
  - Hypersensitivity [Unknown]

NARRATIVE: CASE EVENT DATE: 201409
